FAERS Safety Report 5292592-8 (Version None)
Quarter: 2007Q2

REPORT INFORMATION
  Report Type: 
  Country: None (occurrence: None)
  Receive Date: 20070404
  Receipt Date: 20070320
  Transmission Date: 20071010
  Serious: Yes (Hospitalization)
  Sender: FDA-Public Use
  Company Number: T200700336

PATIENT
  Age: 86 Year
  Sex: Female

DRUGS (3)
  1. OPTIRAY 240 [Suspect]
     Indication: COMPUTERISED TOMOGRAM ABDOMEN
     Dosage: 100 ML, SINGLE, INTRAVENOUS
     Route: 042
     Dates: start: 20070112, end: 20070112
  2. FAMOTIDINE [Concomitant]
  3. WARFARIN SODIUM [Concomitant]

REACTIONS (2)
  - ERYTHEMA MULTIFORME [None]
  - SKIN TEST POSITIVE [None]
